FAERS Safety Report 6925258-6 (Version None)
Quarter: 2010Q3

REPORT INFORMATION
  Report Type: 
  Country: None (occurrence: None)
  Receive Date: 20100816
  Receipt Date: 20100805
  Transmission Date: 20110219
  Serious: Yes (Other)
  Sender: FDA-Public Use
  Company Number: AU-BRISTOL-MYERS SQUIBB COMPANY-15232242

PATIENT
  Age: 48 Year
  Sex: Female

DRUGS (1)
  1. TRIAMCINOLONE ACETONIDE [Suspect]
     Indication: SCLERITIS
     Dosage: INJECTION 1 DF=2MG IN 0.5ML
     Route: 057
     Dates: start: 20080407

REACTIONS (2)
  - CONJUNCTIVAL HAEMORRHAGE [None]
  - INTRAOCULAR PRESSURE INCREASED [None]
